FAERS Safety Report 5281505-0 (Version None)
Quarter: 2007Q1

REPORT INFORMATION
  Report Type: 
  Country: None (occurrence: None)
  Receive Date: 20070330
  Receipt Date: 20070319
  Transmission Date: 20070707
  Serious: Yes (Hospitalization)
  Sender: FDA-Public Use
  Company Number: FR-JNJFOC-20070305004

PATIENT
  Sex: Female

DRUGS (1)
  1. REMICADE [Suspect]
     Indication: RHEUMATOID ARTHRITIS
     Dosage: INITIATED 3 YEARS AGO
     Route: 042

REACTIONS (5)
  - ABDOMINAL PAIN [None]
  - C-REACTIVE PROTEIN INCREASED [None]
  - PYREXIA [None]
  - SIGMOIDITIS [None]
  - TYPE IV HYPERSENSITIVITY REACTION [None]
